FAERS Safety Report 6129438-1 (Version None)
Quarter: 2009Q1

REPORT INFORMATION
  Report Type: 
  Country: None (occurrence: None)
  Receive Date: 20090323
  Receipt Date: 20090323
  Transmission Date: 20090719
  Serious: No
  Sender: FDA-Public Use
  Company Number: None

PATIENT
  Age: 56 Year
  Sex: Male
  Weight: 102.0593 kg

DRUGS (1)
  1. VIAGRA [Suspect]
     Indication: ERECTILE DYSFUNCTION
     Dosage: ONE PER DAY PRN PER DAY PO
     Route: 048
     Dates: start: 20070101, end: 20090131

REACTIONS (2)
  - HAEMATOMA [None]
  - PENIS DISORDER [None]
